FAERS Safety Report 5902082-4 (Version None)
Quarter: 2008Q3

REPORT INFORMATION
  Report Type: 
  Country: None (occurrence: None)
  Receive Date: 20080929
  Receipt Date: 20080915
  Transmission Date: 20090109
  Serious: Yes (Death, Other)
  Sender: FDA-Public Use
  Company Number: US-ROCHE-588235

PATIENT

DRUGS (8)
  1. GANCICLOVIR SODIUM [Suspect]
     Dosage: STARTED ON THE DAY 5 POST-OPERATIVELY AT A DOSE OF 10 MG/KG/DAY IN DIVIDED DOSES
     Route: 042
  2. GANCICLOVIR SODIUM [Suspect]
     Dosage: REDUCED TO 6 MG/KG AND ADMINISTERED IV MONDAY THROUGH FRIDAY FROM DAYS 21 TO 50 POST-OPERATIVELY
     Route: 042
  3. GANCICLOVIR SODIUM [Suspect]
     Dosage: REDUCED TO THREE TIMES WEEKLY IV UNTIL DAY 100 POST-OPERATIVELY
     Route: 042
  4. GANCICLOVIR [Suspect]
     Dosage: ORAL GCV AT A DOSE OF 1,000 MG/DAY IN DIVIDED DOSES WAS STARTED
     Route: 048
  5. CALCINEURIN INHIBITOR NOS [Suspect]
     Indication: IMMUNOSUPPRESSION
     Route: 065
  6. CORTICOSTEROIDS [Suspect]
     Indication: IMMUNOSUPPRESSION
     Route: 048
  7. AZATHIOPRINE [Suspect]
     Indication: IMMUNOSUPPRESSION
     Route: 065
  8. CMV IMMUNOGLOBULIN [Concomitant]
     Dosage: GIVEN TO ALL LTRS ON DAYS 3, 14, 28 AND 56 POST-OPERATIVELY, REGARDLESS OF CMV SEROSTATUS

REACTIONS (4)
  - CYTOMEGALOVIRUS CHORIORETINITIS [None]
  - DISEASE PROGRESSION [None]
  - DRUG INEFFECTIVE [None]
  - LIP AND/OR ORAL CAVITY CANCER [None]
